FAERS Safety Report 10061437 (Version 2)
Quarter: 2014Q2

REPORT INFORMATION
  Report Type: Spontaneous
  Country: IN (occurrence: IN)
  Receive Date: 20140407
  Receipt Date: 20140407
  Transmission Date: 20141212
  Serious: Yes (Other)
  Sender: FDA-Public Use
  Company Number: IN-SA-FABR-1000672

PATIENT
  Age: 17 Year
  Sex: Male
  Weight: 30 kg

DRUGS (4)
  1. FABRAZYME [Suspect]
     Indication: FABRY^S DISEASE
     Dosage: 35 MG, Q2W
     Route: 042
     Dates: start: 20060311, end: 20090224
  2. FABRAZYME [Suspect]
     Indication: FABRY^S DISEASE
     Route: 042
     Dates: start: 200907
  3. AVIL [Concomitant]
     Indication: PREMEDICATION
  4. CARBAMAZEPINE [Concomitant]
     Indication: PAIN
     Route: 048

REACTIONS (7)
  - Eyelid oedema [Recovered/Resolved]
  - Urticaria [Recovered/Resolved]
  - Hypersensitivity [Recovered/Resolved]
  - Rash maculo-papular [Recovered/Resolved]
  - Dyspnoea [Recovered/Resolved]
  - Hypotension [Recovered/Resolved]
  - Pyrexia [Recovered/Resolved]
